FAERS Safety Report 7820906-0 (Version None)
Quarter: 2011Q4

REPORT INFORMATION
  Report Type: 
  Country: None (occurrence: None)
  Receive Date: 20111018
  Receipt Date: 20111012
  Transmission Date: 20120403
  Serious: Yes (Death)
  Sender: FDA-Public Use
  Company Number: US-GLAXOSMITHKLINE-A0948831A

PATIENT
  Age: 66 Year
  Sex: Male

DRUGS (8)
  1. CHERATUSSIN [Concomitant]
  2. PRIMIDONE [Concomitant]
  3. LEVOTHYROXINE SODIUM [Concomitant]
  4. METOPROLOL TARTRATE [Concomitant]
  5. ZOFRAN [Suspect]
     Indication: PROPHYLAXIS OF NAUSEA AND VOMITING
     Dosage: 8MG THREE TIMES PER DAY
     Route: 048
     Dates: start: 20101001
  6. OXYCODONE HCL [Concomitant]
  7. OXYCONTIN [Concomitant]
  8. CARAFATE [Concomitant]

REACTIONS (1)
  - NEOPLASM MALIGNANT [None]
